FAERS Safety Report 15819446 (Version 3)
Quarter: 2019Q1

REPORT INFORMATION
  Report Type: Report from Study
  Country: MX (occurrence: MX)
  Receive Date: 20190114
  Receipt Date: 20190204
  Transmission Date: 20190417
  Serious: Yes (Death, Other)
  Sender: FDA-Public Use
  Company Number: MX-ORION CORPORATION ORION PHARMA-ENTC2019-0007

PATIENT
  Sex: Female
  Weight: 72 kg

DRUGS (8)
  1. ASPIRINE PROTECT [Concomitant]
     Active Substance: ASPIRIN
     Route: 065
     Dates: end: 20181225
  2. OMEPRAZOLE. [Concomitant]
     Active Substance: OMEPRAZOLE
     Route: 065
  3. EXELON PATCH [Suspect]
     Active Substance: RIVASTIGMINE
     Dosage: 9.5 MG, QD PATCH 10 (CM2)
     Route: 062
  4. CO-DIOVAN [Suspect]
     Active Substance: HYDROCHLOROTHIAZIDE\VALSARTAN
     Dosage: STRENGTH: HYDROCHLOROTHIAZIDE 12.5 MG/VALSARTAN 160 MG
     Route: 048
     Dates: end: 20181225
  5. CO-DIOVAN [Suspect]
     Active Substance: HYDROCHLOROTHIAZIDE\VALSARTAN
     Indication: BLOOD CHOLESTEROL ABNORMAL
     Dosage: STRENGTH: HYDROCHLOROTHIAZIDE 12.5 MG/VALSARTAN 160 MG
     Route: 048
  6. EXELON PATCH [Suspect]
     Active Substance: RIVASTIGMINE
     Indication: DEMENTIA ALZHEIMER^S TYPE
     Dosage: PATCH 10 (CM2); 0.5 DOSAGE FORM
     Route: 062
     Dates: start: 20190103
  7. GLUCOPHAGE [Concomitant]
     Active Substance: METFORMIN HYDROCHLORIDE
     Route: 065
  8. STALEVO [Suspect]
     Active Substance: CARBIDOPA\ENTACAPONE\LEVODOPA
     Indication: PRODUCT USED FOR UNKNOWN INDICATION
     Dosage: STRENGTH: 100/25/200 MG, 1 DF AT 11:00 AND 1 DF AT 5:00
     Route: 048

REACTIONS (5)
  - Memory impairment [Unknown]
  - Eating disorder [Unknown]
  - Dementia Alzheimer^s type [Fatal]
  - Dysphagia [Unknown]
  - Parkinson^s disease [Fatal]
